FAERS Safety Report 10253117 (Version 1)
Quarter: 2014Q2

REPORT INFORMATION
  Report Type: Spontaneous
  Country: US (occurrence: US)
  Receive Date: 20140623
  Receipt Date: 20140623
  Transmission Date: 20141212
  Serious: No
  Sender: FDA-Public Use
  Company Number: US-ZOGENIX, INC.-2011ZX000409

PATIENT
  Sex: Female
  Weight: 120.31 kg

DRUGS (8)
  1. SUMAVEL DOSEPRO [Suspect]
     Indication: MIGRAINE
  2. HYDROCODONE [Concomitant]
     Indication: BACK PAIN
     Route: 048
  3. CYCLOBENZAPRINE [Concomitant]
     Indication: BACK PAIN
     Route: 048
  4. CITALOPRAM [Concomitant]
     Indication: DEPRESSION
     Route: 048
  5. LISINOPRIL + HIDROCLOROTIAZIDA [Concomitant]
     Indication: BLOOD PRESSURE
     Route: 048
  6. TEMAZEPAM [Concomitant]
     Indication: PRODUCT USED FOR UNKNOWN INDICATION
     Route: 048
  7. IMITREX                            /01044801/ [Concomitant]
     Indication: MIGRAINE
  8. IRON [Concomitant]
     Indication: PRODUCT USED FOR UNKNOWN INDICATION

REACTIONS (2)
  - Injection site bruising [Recovered/Resolved]
  - Injection site haemorrhage [Recovered/Resolved]
